FAERS Safety Report 4337982-2 (Version None)
Quarter: 2004Q1

REPORT INFORMATION
  Report Type: 
  Country: None (occurrence: None)
  Receive Date: 20040329
  Receipt Date: 20031201
  Transmission Date: 20041129
  Serious: No
  Sender: FDA-Public Use
  Company Number: USA031253642

PATIENT
  Age: 40 Year
  Sex: Female

DRUGS (2)
  1. STRATTERA [Suspect]
     Indication: ATTENTION DEFICIT/HYPERACTIVITY DISORDER
     Dosage: 60 MG/DAY
     Dates: start: 20031101
  2. PROZAC [Suspect]
     Indication: DEPRESSION

REACTIONS (6)
  - CONSTIPATION [None]
  - DYSPEPSIA [None]
  - FATIGUE [None]
  - FEELING ABNORMAL [None]
  - IRRITABILITY [None]
  - MALAISE [None]
